FAERS Safety Report 9825106 (Version 1)
Quarter: 2013Q4

REPORT INFORMATION
  Report Type: Spontaneous
  Country: US (occurrence: None)
  Receive Date: 20131031
  Receipt Date: 20131031
  Transmission Date: 20140711
  Serious: Yes (Other)
  Sender: FDA-Public Use
  Company Number: 2013S1000019

PATIENT
  Sex: Male

DRUGS (1)
  1. KRYSTEXXA (PEGLOTICASE)(PEGLOTICASE) [Suspect]
     Indication: GOUT
     Route: 042

REACTIONS (5)
  - Infusion related reaction [None]
  - Hypertension [None]
  - Tachycardia [None]
  - Dyspnoea [None]
  - Therapeutic response decreased [None]
